FAERS Safety Report 9008932 (Version 2)
Quarter: 2013Q1

REPORT INFORMATION
  Report Type: Spontaneous
  Country: US (occurrence: US)
  Receive Date: 20130111
  Receipt Date: 20130304
  Transmission Date: 20140127
  Serious: No
  Sender: FDA-Public Use
  Company Number: US-ASTRAZENECA-2012SE94244

PATIENT
  Sex: Male

DRUGS (1)
  1. SYMBICORT PMDI [Suspect]
     Indication: RESPIRATORY DISORDER
     Dosage: 160/4.5 MCG, 2 PUFFS, BID
     Route: 055

REACTIONS (5)
  - Dyspnoea [Unknown]
  - Asthma [Unknown]
  - Chronic obstructive pulmonary disease [Unknown]
  - Dysgeusia [Unknown]
  - Drug ineffective [Unknown]
